FAERS Safety Report 15395007 (Version 13)
Quarter: 2021Q2

REPORT INFORMATION
  Report Type: Other
  Country: DE (occurrence: DE)
  Receive Date: 20180918
  Receipt Date: 20210510
  Transmission Date: 20210716
  Serious: Yes (Hospitalization)
  Sender: FDA-Public Use
  Company Number: DE-ROCHE-2184134

PATIENT
  Age: 40 Year
  Sex: Female

DRUGS (14)
  1. PREDNISOLUT [Concomitant]
     Active Substance: PREDNISOLONE
     Indication: PREMEDICATION
     Dosage: PRE?MEDICATION BEFORE OCRELIZUMAB ONLY ON INFUSION DAY
     Route: 042
     Dates: start: 20180307
  2. FENISTIL [Concomitant]
     Active Substance: DIMETHINDENE
     Dosage: ANTIHISTAMINE PREMEDICATION BEFORE OCRELIZUMAB ONLY ON INFUSION DAY
     Route: 042
  3. IBUPROFEN. [Concomitant]
     Active Substance: IBUPROFEN
     Indication: PREMEDICATION
     Dosage: ANTIPYRETIC,PREMEDICATION BEFORE OCRELIZUMAB ONLY ON INFUSION DAY
     Route: 051
     Dates: start: 20180307
  4. IBUPROFEN. [Concomitant]
     Active Substance: IBUPROFEN
     Dosage: ANTIPYRETIC,PREMEDICATION BEFORE OCRELIZUMAB ONLY ON INFUSION DAY
     Route: 051
  5. CITALOPRAM [Concomitant]
     Active Substance: CITALOPRAM HYDROBROMIDE
     Indication: DEPRESSION
     Route: 048
     Dates: start: 20160101
  6. FOLSAN [Concomitant]
     Active Substance: FOLIC ACID
     Indication: FOLATE DEFICIENCY
     Route: 048
     Dates: start: 20000101, end: 20191201
  7. FENISTIL [Concomitant]
     Active Substance: DIMETHINDENE
     Indication: PREMEDICATION
     Dosage: ANTIHISTAMINE PREMEDICATION BEFORE OCRELIZUMAB ONLY ON INFUSION DAY
     Route: 042
     Dates: start: 20180307
  8. BACLOFEN. [Concomitant]
     Active Substance: BACLOFEN
     Indication: MUSCLE SPASTICITY
     Route: 048
     Dates: start: 202003
  9. VITAMIN B12 [Concomitant]
     Active Substance: CYANOCOBALAMIN
     Indication: VITAMIN B COMPLEX DEFICIENCY
     Route: 058
     Dates: start: 20000101, end: 20200601
  10. PREDNISOLUT [Concomitant]
     Active Substance: PREDNISOLONE
     Dosage: PRE?MEDICATION BEFORE OCRELIZUMAB ONLY ON INFUSION DAY
     Route: 042
  11. PREGABALIN. [Concomitant]
     Active Substance: PREGABALIN
     Indication: NEURALGIA
     Dosage: INITIAL DOSE PREGABALIN 75 MG TWICE DAILY (1?0?1) FROM MAR/2020 UNTIL OCT/2020
     Route: 048
     Dates: start: 202003
  12. BOTOX [Concomitant]
     Active Substance: ONABOTULINUMTOXINA
     Indication: HYPERHIDROSIS
     Route: 023
     Dates: start: 20100427
  13. OCRELIZUMAB. [Suspect]
     Active Substance: OCRELIZUMAB
     Indication: MULTIPLE SCLEROSIS
     Route: 042
     Dates: start: 20180307, end: 20180322
  14. L?THYROXIN [Concomitant]
     Active Substance: LEVOTHYROXINE SODIUM
     Indication: HYPOTHYROIDISM
     Route: 048
     Dates: start: 201902, end: 201902

REACTIONS (1)
  - Cholelithiasis [Recovered/Resolved]

NARRATIVE: CASE EVENT DATE: 20180312
